FAERS Safety Report 9703724 (Version 1)
Quarter: 2013Q4

REPORT INFORMATION
  Report Type: Spontaneous
  Country: JP (occurrence: JP)
  Receive Date: 20131122
  Receipt Date: 20131122
  Transmission Date: 20140711
  Serious: Yes (Other)
  Sender: FDA-Public Use
  Company Number: JP-BAYER-2013-139893

PATIENT
  Sex: 0

DRUGS (2)
  1. BAYASPIRIN [Suspect]
     Route: 048
  2. PLAVIX [Suspect]
     Dosage: UNK
     Route: 048

REACTIONS (1)
  - Dermatitis exfoliative [None]
